FAERS Safety Report 5310512-4 (Version None)
Quarter: 2007Q2

REPORT INFORMATION
  Report Type: 
  Country: None (occurrence: None)
  Receive Date: 20070427
  Receipt Date: 20070419
  Transmission Date: 20071010
  Serious: Yes (Other)
  Sender: FDA-Public Use
  Company Number: BR-ABBOTT-07P-020-0365858-00

PATIENT
  Age: 5 Year
  Sex: Male

DRUGS (1)
  1. DEPAKENE [Suspect]
     Indication: DRUG USE FOR UNKNOWN INDICATION
     Route: 048
     Dates: start: 20070419, end: 20070419

REACTIONS (3)
  - ACCIDENTAL EXPOSURE [None]
  - CONVULSION [None]
  - SYNCOPE [None]
